FAERS Safety Report 19689764 (Version 1)
Quarter: 2021Q3

REPORT INFORMATION
  Report Type: Spontaneous
  Country: US (occurrence: US)
  Receive Date: 20210811
  Receipt Date: 20210811
  Transmission Date: 20211014
  Serious: Yes (Death)
  Sender: FDA-Public Use
  Company Number: None

PATIENT
  Sex: Female
  Weight: 61.2 kg

DRUGS (14)
  1. IPRATROPIUM [Concomitant]
     Active Substance: IPRATROPIUM
  2. VALSARTAN. [Concomitant]
     Active Substance: VALSARTAN
  3. RESTASIS [Concomitant]
     Active Substance: CYCLOSPORINE
  4. NAMENDA [Concomitant]
     Active Substance: MEMANTINE HYDROCHLORIDE
  5. ALBUTEROL HFA [Concomitant]
     Active Substance: ALBUTEROL SULFATE
  6. CALCIUM CARBONATE?VITAMIN D [Concomitant]
     Active Substance: CALCIUM CARBONATE\VITAMIN D
  7. DEXAMETHASONE. [Concomitant]
     Active Substance: DEXAMETHASONE
  8. NORCO [Concomitant]
     Active Substance: ACETAMINOPHEN\HYDROCODONE BITARTRATE
  9. EVEROLIMUS. [Suspect]
     Active Substance: EVEROLIMUS
     Indication: BREAST CANCER FEMALE
     Route: 048
  10. LASIX [Concomitant]
     Active Substance: FUROSEMIDE
  11. METOPROLOL TARTRATE. [Concomitant]
     Active Substance: METOPROLOL TARTRATE
  12. PANTOPRAZOLE [Concomitant]
     Active Substance: PANTOPRAZOLE
  13. DONEPEZIL. [Concomitant]
     Active Substance: DONEPEZIL
  14. TAMOXIFEN CITRATE. [Concomitant]
     Active Substance: TAMOXIFEN CITRATE

REACTIONS (1)
  - Death [None]
